FAERS Safety Report 8392565-2 (Version None)
Quarter: 2012Q2

REPORT INFORMATION
  Report Type: 
  Country: None (occurrence: None)
  Receive Date: 20120529
  Receipt Date: 20120522
  Transmission Date: 20120825
  Serious: Yes (Hospitalization)
  Sender: FDA-Public Use
  Company Number: FR-MERCK-1203USA01153

PATIENT
  Age: 68 Year
  Sex: Male

DRUGS (9)
  1. OMEPRAZOLE [Suspect]
     Route: 048
     Dates: start: 20120208, end: 20120208
  2. PANTOPRAZOLE [Concomitant]
     Route: 065
     Dates: end: 20120205
  3. EZETIMIBE [Concomitant]
     Route: 065
     Dates: start: 20120206, end: 20120207
  4. METFORMIN HCL [Concomitant]
     Route: 065
  5. ASPIRIN [Concomitant]
     Route: 065
  6. SIMVASTATIN [Concomitant]
     Route: 065
     Dates: start: 20120206, end: 20120207
  7. VALSARTAN [Concomitant]
     Route: 065
  8. OMEPRAZOLE [Concomitant]
     Route: 065
     Dates: start: 20120206, end: 20120207
  9. VYTORIN [Suspect]
     Route: 048
     Dates: start: 20120208, end: 20120208

REACTIONS (5)
  - MALAISE [None]
  - PRURITUS [None]
  - GENERALISED ERYTHEMA [None]
  - FACE OEDEMA [None]
  - LOSS OF CONSCIOUSNESS [None]
